FAERS Safety Report 7700957 (Version 2)
Quarter: 2012Q4

REPORT INFORMATION
  Report Type: 
  Country: US (occurrence: US)
  Receive Date: 20101209
  Receipt Date: 20121022
  Transmission Date: 20130627
  Serious: No
  Sender: FDA-Public Use
  Company Number: US-BIOGENIDEC-2010BI042348

PATIENT
  Age: 23 Year
  Sex: Female

DRUGS (8)
  1. TYSABRI [Suspect]
     Indication: MULTIPLE SCLEROSIS
     Route: 042
     Dates: start: 20100923
  2. LOW DOSE ANTIBIOTIC [Concomitant]
     Indication: PROPHYLAXIS URINARY TRACT INFECTION
  3. LOW DOSE ANTIBIOTIC [Concomitant]
  4. LAXATIVES [Concomitant]
     Indication: CONSTIPATION
  5. FIBER [Concomitant]
     Indication: CONSTIPATION
  6. MEDICATION (NOS) [Concomitant]
     Indication: CONSTIPATION
  7. UROQID [Concomitant]
     Indication: NEUROGENIC BLADDER
  8. MACROBID [Concomitant]
     Indication: NEUROGENIC BLADDER

REACTIONS (6)
  - Abdominal pain [Recovered/Resolved]
  - Nephrolithiasis [Recovered/Resolved]
  - Kidney infection [Not Recovered/Not Resolved]
  - Urinary tract infection [Recovered/Resolved]
  - Multiple sclerosis [Recovered/Resolved]
  - Constipation [Recovered/Resolved]
